FAERS Safety Report 22108152 (Version 4)
Quarter: 2023Q4

REPORT INFORMATION
  Report Type: Spontaneous
  Country: BE (occurrence: BE)
  Receive Date: 20230317
  Receipt Date: 20231205
  Transmission Date: 20240109
  Serious: Yes (Death, Other)
  Sender: FDA-Public Use
  Company Number: BE-ROCHE-3292532

PATIENT
  Age: 61 Year
  Sex: Male

DRUGS (30)
  1. TRASTUZUMAB [Suspect]
     Active Substance: TRASTUZUMAB
     Indication: Metastases to liver
     Dosage: 6 MILLIGRAM/KILOGRAM,Q3W (SOLUTION FOR INFUSION)
     Route: 042
     Dates: start: 201801
  2. TRASTUZUMAB [Suspect]
     Active Substance: TRASTUZUMAB
     Indication: Oesophageal adenocarcinoma
     Dosage: 8 MG/KG,Q3W (SOLUTION FOR INFUSION)
     Route: 042
     Dates: start: 201801
  3. TRASTUZUMAB [Suspect]
     Active Substance: TRASTUZUMAB
     Indication: Oesophageal cancer metastatic
     Dosage: 8 MG/KG,Q3W(LOADING DOSE,SOLUTION FOR INFUSION)
     Route: 042
     Dates: start: 201808
  4. TRASTUZUMAB [Suspect]
     Active Substance: TRASTUZUMAB
     Indication: Metastasis
     Dosage: 8 MILLIGRAM/KILOGRAM
     Route: 065
     Dates: start: 201801
  5. TRASTUZUMAB [Suspect]
     Active Substance: TRASTUZUMAB
     Indication: Metastases to lymph nodes
     Dosage: 6 MILLIGRAM/KILOGRAM
     Route: 065
     Dates: start: 2018
  6. TRASTUZUMAB [Suspect]
     Active Substance: TRASTUZUMAB
     Indication: Metastases to liver
  7. OXALIPLATIN [Suspect]
     Active Substance: OXALIPLATIN
     Indication: Oesophageal adenocarcinoma
     Dosage: 390 MG/SQ.METER,QW,(130 MILLIGRAM/SQ. METER, Q3W)
     Route: 065
     Dates: start: 201801
  8. OXALIPLATIN [Suspect]
     Active Substance: OXALIPLATIN
     Indication: Metastases to liver
     Dosage: 130 MILLIGRAM (130 MILLIGRAM/M2)
     Route: 065
     Dates: start: 201808
  9. OXALIPLATIN [Suspect]
     Active Substance: OXALIPLATIN
     Indication: Oesophageal cancer metastatic
     Dosage: 130 MILLIGRAM/SQ. METER
     Route: 065
     Dates: start: 201801, end: 2018
  10. OXALIPLATIN [Suspect]
     Active Substance: OXALIPLATIN
     Indication: Metastasis
  11. OXALIPLATIN [Suspect]
     Active Substance: OXALIPLATIN
     Indication: Metastases to lymph nodes
  12. OXALIPLATIN [Suspect]
     Active Substance: OXALIPLATIN
     Indication: Metastases to liver
  13. CAPECITABINE [Suspect]
     Active Substance: CAPECITABINE
     Indication: Oesophageal adenocarcinoma
     Dosage: 2000MG/SQ.METER,QD,1000 MG/M2,2X/D
     Route: 065
     Dates: start: 201801
  14. CAPECITABINE [Suspect]
     Active Substance: CAPECITABINE
     Indication: Metastases to liver
     Dosage: 1000 MILLIGRAM/M2, BID (FOR 14 DAYS)
     Route: 065
     Dates: start: 201808
  15. CAPECITABINE [Suspect]
     Active Substance: CAPECITABINE
     Indication: Oesophageal cancer metastatic
     Dosage: 1000 MG/M2
     Route: 065
     Dates: start: 201801, end: 2018
  16. CAPECITABINE [Suspect]
     Active Substance: CAPECITABINE
     Indication: Metastasis
  17. CAPECITABINE [Suspect]
     Active Substance: CAPECITABINE
     Indication: Metastases to lymph nodes
  18. CAPECITABINE [Suspect]
     Active Substance: CAPECITABINE
     Indication: Metastases to liver
  19. NIVOLUMAB [Concomitant]
     Active Substance: NIVOLUMAB
     Indication: Oesophageal adenocarcinoma
     Dosage: 3 MILLIGRAM/KILOGRAM, BIWEEKLY
     Route: 065
     Dates: start: 2018
  20. NIVOLUMAB [Concomitant]
     Active Substance: NIVOLUMAB
     Indication: Metastasis
  21. NIVOLUMAB [Concomitant]
     Active Substance: NIVOLUMAB
     Indication: Metastases to lymph nodes
  22. NIVOLUMAB [Concomitant]
     Active Substance: NIVOLUMAB
     Indication: Metastases to liver
  23. RAMUCIRUMAB [Concomitant]
     Active Substance: RAMUCIRUMAB
     Indication: Oesophageal adenocarcinoma
     Dosage: UNK
     Route: 065
  24. RAMUCIRUMAB [Concomitant]
     Active Substance: RAMUCIRUMAB
     Indication: Metastasis
  25. RAMUCIRUMAB [Concomitant]
     Active Substance: RAMUCIRUMAB
     Indication: Metastases to lymph nodes
  26. RAMUCIRUMAB [Concomitant]
     Active Substance: RAMUCIRUMAB
     Indication: Metastases to liver
  27. PACLITAXEL [Concomitant]
     Active Substance: PACLITAXEL
     Indication: Oesophageal adenocarcinoma
     Dosage: UNK
     Route: 065
  28. PACLITAXEL [Concomitant]
     Active Substance: PACLITAXEL
     Indication: Metastasis
  29. PACLITAXEL [Concomitant]
     Active Substance: PACLITAXEL
     Indication: Metastases to lymph nodes
  30. PACLITAXEL [Concomitant]
     Active Substance: PACLITAXEL
     Indication: Metastases to liver

REACTIONS (9)
  - Death [Fatal]
  - Drug ineffective [Fatal]
  - Adenocarcinoma metastatic [Fatal]
  - Neuropathy peripheral [Unknown]
  - Disease progression [Unknown]
  - Dysphagia [Unknown]
  - Drug intolerance [Unknown]
  - Therapy partial responder [Unknown]
  - Off label use [Unknown]

NARRATIVE: CASE EVENT DATE: 20180101
